FAERS Safety Report 9406046 (Version 1)
Quarter: 2013Q3

REPORT INFORMATION
  Report Type: Spontaneous
  Country: US (occurrence: US)
  Receive Date: 20130717
  Receipt Date: 20130717
  Transmission Date: 20140515
  Serious: Yes (Other)
  Sender: FDA-Public Use
  Company Number: US-ASTRAZENECA-2013SE51430

PATIENT
  Age: 78 Year
  Sex: Female

DRUGS (4)
  1. METOPROLOL SUCCINATE ER (PAR) [Suspect]
     Indication: BLOOD PRESSURE ABNORMAL
     Route: 048
  2. BENICAR HCT [Concomitant]
     Indication: BLOOD PRESSURE ABNORMAL
     Dosage: 20/12.5, DAILY
     Route: 048
  3. AMLODIPINE [Concomitant]
     Dosage: DAILY
     Route: 048
  4. PROBIOTICS [Concomitant]
     Route: 048

REACTIONS (4)
  - Malignant melanoma [Unknown]
  - Hypertension [Unknown]
  - Tachycardia [Unknown]
  - Drug dose omission [Unknown]
